FAERS Safety Report 7309999-7 (Version None)
Quarter: 2011Q1

REPORT INFORMATION
  Report Type: 
  Country: None (occurrence: None)
  Receive Date: 20110224
  Receipt Date: 20110218
  Transmission Date: 20110831
  Serious: Yes (Other)
  Sender: FDA-Public Use
  Company Number: US-BAYER-2011-016159

PATIENT
  Sex: Female

DRUGS (2)
  1. OCELLA [Suspect]
     Dosage: UNK
     Dates: start: 20080717, end: 20090131
  2. YASMIN [Suspect]
     Dosage: UNK
     Dates: start: 20070502, end: 20080616

REACTIONS (1)
  - DEEP VEIN THROMBOSIS [None]
